FAERS Safety Report 17799289 (Version 1)
Quarter: 2020Q2

REPORT INFORMATION
  Report Type: Spontaneous
  Country: JP (occurrence: JP)
  Receive Date: 20200518
  Receipt Date: 20200518
  Transmission Date: 20200714
  Serious: Yes (Life-Threatening, Hospitalization)
  Sender: FDA-Public Use
  Company Number: JP-NATCO PHARMA-2020NAT00017

PATIENT
  Age: 14 Year
  Sex: Male

DRUGS (2)
  1. OSELTAMIVIR PHOSPHATE. [Suspect]
     Active Substance: OSELTAMIVIR PHOSPHATE
     Indication: INFLUENZA
     Dosage: 75 MG, 2X/DAY
     Route: 065
  2. ACETAMINOPHEN. [Concomitant]
     Active Substance: ACETAMINOPHEN
     Indication: INFLUENZA
     Dosage: 400 MG AS NEEDED
     Route: 065

REACTIONS (3)
  - Shock [Recovered/Resolved]
  - Enterocolitis haemorrhagic [Recovered/Resolved]
  - Anaemia [Recovered/Resolved]
